FAERS Safety Report 18418990 (Version 1)
Quarter: 2020Q4

REPORT INFORMATION
  Report Type: Spontaneous
  Country: MY (occurrence: MY)
  Receive Date: 20201023
  Receipt Date: 20201023
  Transmission Date: 20210114
  Serious: Yes (Other)
  Sender: FDA-Public Use
  Company Number: MY-LUPIN PHARMACEUTICALS INC.-2020-07634

PATIENT
  Age: 23 Year
  Sex: Female

DRUGS (1)
  1. SERTRALINE [Suspect]
     Active Substance: SERTRALINE HYDROCHLORIDE
     Indication: MAJOR DEPRESSION
     Dosage: 75 MILLIGRAM QD (ONCE AT NIGHT)
     Route: 065

REACTIONS (2)
  - Mania [Unknown]
  - Serum serotonin increased [Unknown]
